FAERS Safety Report 21581868 (Version 1)
Quarter: 2022Q4

REPORT INFORMATION
  Report Type: Spontaneous
  Country: TW (occurrence: None)
  Receive Date: 20221111
  Receipt Date: 20221111
  Transmission Date: 20230113
  Serious: Yes (Hospitalization, Other)
  Sender: FDA-Public Use
  Company Number: TW-ROCHE-3216056

PATIENT
  Age: 62 Year
  Sex: Female

DRUGS (6)
  1. OBINUTUZUMAB [Suspect]
     Active Substance: OBINUTUZUMAB
     Indication: Follicular lymphoma
     Dosage: OBINUTUZUMAB MAINTENANCE
     Route: 042
     Dates: start: 20200318, end: 20201015
  2. BENDAMUSTINE [Suspect]
     Active Substance: BENDAMUSTINE
     Indication: Follicular lymphoma
     Dosage: BENDAMUSTINE AND OBINUTUZUMAB
     Route: 065
     Dates: start: 20200318, end: 20201015
  3. RITUXIMAB [Suspect]
     Active Substance: RITUXIMAB
     Indication: Follicular lymphoma stage IV
     Dosage: RITUXIMAB MAINTENANCE UNTIL FEB/2020
     Route: 065
     Dates: end: 202002
  4. RITUXIMAB [Suspect]
     Active Substance: RITUXIMAB
     Dosage: RITUXIMAB PLUS COPANLISIB
     Route: 065
     Dates: start: 20211217, end: 20220526
  5. BENDAMUSTINE [Concomitant]
     Active Substance: BENDAMUSTINE
     Indication: Follicular lymphoma
     Dosage: BENDAMUSTINE AND OBINUTUZUMAB
     Route: 065
     Dates: start: 20200318, end: 20201015
  6. COPANLISIB [Concomitant]
     Active Substance: COPANLISIB
     Indication: Follicular lymphoma
     Dosage: RITUXIMAB PLUS COPANLISIB
     Dates: start: 20211217, end: 20220526

REACTIONS (2)
  - Follicular lymphoma [Unknown]
  - COVID-19 [Unknown]

NARRATIVE: CASE EVENT DATE: 20211101
